FAERS Safety Report 23935895 (Version 1)
Quarter: 2024Q2

REPORT INFORMATION
  Report Type: Spontaneous
  Country: CA (occurrence: CA)
  Receive Date: 20240604
  Receipt Date: 20240604
  Transmission Date: 20240716
  Serious: Yes (Other)
  Sender: FDA-Public Use
  Company Number: CA-SANOFI-AVENTIS R+D-2024SA164087

PATIENT
  Age: 48 Year
  Sex: Male

DRUGS (6)
  1. SULFASALAZINE [Suspect]
     Active Substance: SULFASALAZINE
     Indication: Rheumatoid arthritis
     Dosage: 1 DF
     Dates: start: 202402
  2. METHOTREXATE [Suspect]
     Active Substance: METHOTREXATE
     Indication: Rheumatoid arthritis
     Dosage: 1 DF
     Dates: start: 202308
  3. HYDROXYCHLOROQUINE [Suspect]
     Active Substance: HYDROXYCHLOROQUINE
     Dosage: UNK
     Dates: start: 2022
  4. LEFLUNOMIDE [Suspect]
     Active Substance: LEFLUNOMIDE
  5. ADVIL [Suspect]
     Active Substance: IBUPROFEN\IBUPROFEN SODIUM
     Dosage: 1 DF, PRN
  6. FLUOXETINE [Concomitant]
     Active Substance: FLUOXETINE HYDROCHLORIDE
     Dosage: UNK

REACTIONS (2)
  - Rheumatoid arthritis [Unknown]
  - Drug ineffective [Unknown]
